FAERS Safety Report 7508964-4 (Version None)
Quarter: 2011Q2

REPORT INFORMATION
  Report Type: 
  Country: None (occurrence: None)
  Receive Date: 20110527
  Receipt Date: 20110519
  Transmission Date: 20111010
  Serious: Yes (Other)
  Sender: FDA-Public Use
  Company Number: JP-PFIZER INC-2011106095

PATIENT
  Age: 68 Year
  Sex: Male

DRUGS (2)
  1. ZYVOX [Suspect]
     Indication: STAPHYLOCOCCAL BACTERAEMIA
     Dosage: 1200 MG, 1X/DAY
     Route: 041
     Dates: start: 20110501, end: 20110519
  2. ZYVOX [Suspect]
     Indication: PNEUMONIA STAPHYLOCOCCAL

REACTIONS (2)
  - PSEUDOMONAS TEST POSITIVE [None]
  - HYPONATRAEMIA [None]
